FAERS Safety Report 5847227-X (Version None)
Quarter: 2008Q3

REPORT INFORMATION
  Report Type: 
  Country: None (occurrence: None)
  Receive Date: 20080815
  Receipt Date: 20080808
  Transmission Date: 20090109
  Serious: Yes (Hospitalization)
  Sender: FDA-Public Use
  Company Number: US-BOEHRINGER INGELHEIM GMBH, GERMANY-2008-BP-12496BP

PATIENT
  Age: 57 Year
  Sex: Female

DRUGS (4)
  1. FLOMAX [Suspect]
     Indication: URINARY HESITATION
     Route: 048
     Dates: start: 20050101
  2. ATIVAN [Concomitant]
  3. NYSTATIN [Concomitant]
     Route: 048
  4. ADVIL [Concomitant]

REACTIONS (3)
  - BACK PAIN [None]
  - MUSCULAR WEAKNESS [None]
  - URINARY RETENTION [None]
